FAERS Safety Report 8812038 (Version 1)
Quarter: 2012Q4

REPORT INFORMATION
  Report Type: 
  Country: US (occurrence: US)
  Receive Date: 20120927
  Receipt Date: 20120927
  Transmission Date: 20130627
  Serious: Yes (Hospitalization, Other)
  Sender: FDA-Public Use
  Company Number: CHPA2012US020233

PATIENT
  Age: 50 Year
  Sex: Female

DRUGS (4)
  1. CONTROL PLP [Suspect]
     Indication: SMOKING CESSATION THERAPY
     Dosage: 21 mg, QD
     Route: 062
  2. CONTROL PLP [Suspect]
     Dosage: 21 mg, QD
     Route: 062
     Dates: start: 201208, end: 201208
  3. CONTROL PLP [Suspect]
     Dosage: 21 mg, QD
     Route: 062
  4. CONTROL PLP [Suspect]
     Dosage: 21 mg, QD
     Route: 062
     Dates: start: 201109, end: 201109

REACTIONS (5)
  - Spinal fracture [Recovered/Resolved]
  - Road traffic accident [Recovered/Resolved]
  - Pneumonia [Recovered/Resolved]
  - Malaise [Recovered/Resolved]
  - Inappropriate schedule of drug administration [Unknown]
